FAERS Safety Report 23201494 (Version 1)
Quarter: 2023Q4

REPORT INFORMATION
  Report Type: Spontaneous
  Country: US (occurrence: US)
  Receive Date: 20231118
  Receipt Date: 20231118
  Transmission Date: 20240110
  Serious: Yes (Other)
  Sender: FDA-Public Use
  Company Number: US-MLMSERVICE-20190603-1785625-1

PATIENT
  Sex: Female

DRUGS (7)
  1. AMIODARONE HYDROCHLORIDE [Suspect]
     Active Substance: AMIODARONE HYDROCHLORIDE
     Indication: Hydrops foetalis
     Dosage: 800 MILLIGRAM, DAILY ON FIRST DAY AT 33 2/7 WEEKS^ GESTATION
     Route: 065
  2. AMIODARONE HYDROCHLORIDE [Suspect]
     Active Substance: AMIODARONE HYDROCHLORIDE
     Indication: Tachycardia foetal
     Dosage: 400 MILLIGRAM, TWO TIMES A DAY ON DAY 2
     Route: 065
  3. AMIODARONE HYDROCHLORIDE [Suspect]
     Active Substance: AMIODARONE HYDROCHLORIDE
     Dosage: 400 MILLIGRAM, TWO TIMES A DAY FOR 8 DAYS
     Route: 065
  4. FLECAINIDE [Suspect]
     Active Substance: FLECAINIDE
     Dosage: UNK
     Route: 065
  5. SOTALOL HYDROCHLORIDE [Suspect]
     Active Substance: SOTALOL HYDROCHLORIDE
     Indication: Supraventricular tachycardia
     Dosage: UNK
     Route: 065
  6. DIGOXIN [Suspect]
     Active Substance: DIGOXIN
     Dosage: UNK
     Route: 065
  7. LEVOTHYROXINE [Concomitant]
     Active Substance: LEVOTHYROXINE
     Indication: Hypothyroidism
     Dosage: 100 MICROGRAM, DAILY
     Route: 065

REACTIONS (5)
  - Maternal exposure during pregnancy [Unknown]
  - Hypothyroidism [Unknown]
  - Drug ineffective [Unknown]
  - Pre-eclampsia [Unknown]
  - Premature delivery [Unknown]
